FAERS Safety Report 8100651-7 (Version None)
Quarter: 2012Q1

REPORT INFORMATION
  Report Type: 
  Country: None (occurrence: None)
  Receive Date: 20120131
  Receipt Date: 20120117
  Transmission Date: 20120608
  Serious: Yes (Other)
  Sender: FDA-Public Use
  Company Number: CA-JNJFOC-20111006240

PATIENT
  Sex: Male
  Weight: 76 kg

DRUGS (5)
  1. REMICADE [Suspect]
     Route: 042
     Dates: start: 20080220, end: 20110802
  2. CHOLESTEROL MEDICATION NOS [Concomitant]
  3. ORAL HYPOGLYCEMICS [Concomitant]
  4. REMICADE [Suspect]
     Indication: ANKYLOSING SPONDYLITIS
     Dosage: WEEK 0 INDUCTION DOSE
     Route: 042
     Dates: start: 20120117
  5. DICLOFENAC [Concomitant]

REACTIONS (1)
  - HIP FRACTURE [None]
